FAERS Safety Report 15222025 (Version 1)
Quarter: 2018Q3

REPORT INFORMATION
  Report Type: Spontaneous
  Country: US (occurrence: US)
  Receive Date: 20180731
  Receipt Date: 20180731
  Transmission Date: 20181010
  Serious: Yes (Other)
  Sender: FDA-Public Use
  Company Number: US-SAOL THERAPEUTICS-2018SAO00905

PATIENT
  Age: 9 Year
  Sex: Female

DRUGS (2)
  1. BACLOFEN. [Suspect]
     Active Substance: BACLOFEN
     Indication: CEREBRAL PALSY
  2. BACLOFEN. [Suspect]
     Active Substance: BACLOFEN
     Indication: QUADRIPARESIS

REACTIONS (2)
  - Hypoxia [Recovered/Resolved]
  - Sleep apnoea syndrome [Recovered/Resolved]
